FAERS Safety Report 6145702-4 (Version None)
Quarter: 2009Q2

REPORT INFORMATION
  Report Type: 
  Country: None (occurrence: None)
  Receive Date: 20090406
  Receipt Date: 20090406
  Transmission Date: 20091009
  Serious: Yes (Hospitalization)
  Sender: FDA-Public Use
  Company Number: None

PATIENT
  Age: 72 Year
  Sex: Female
  Weight: 62 kg

DRUGS (1)
  1. DEPAKOTE [Suspect]
     Indication: CONVULSION
     Dosage: 4 CAPS 125MG X 4 (TOTAL = 500MG) QID PO (DURATION: } 1 MONTH)
     Route: 048

REACTIONS (10)
  - AMNESIA [None]
  - ANTICONVULSANT DRUG LEVEL ABOVE THERAPEUTIC [None]
  - ANTICONVULSANT DRUG LEVEL BELOW THERAPEUTIC [None]
  - APNOEA [None]
  - CONFUSIONAL STATE [None]
  - DEMENTIA [None]
  - HYPERAMMONAEMIA [None]
  - HYPERSOMNIA [None]
  - LETHARGY [None]
  - OXYGEN SATURATION DECREASED [None]
